FAERS Safety Report 6745189-4 (Version None)
Quarter: 2010Q2

REPORT INFORMATION
  Report Type: 
  Country: None (occurrence: None)
  Receive Date: 20100526
  Receipt Date: 20100514
  Transmission Date: 20101027
  Serious: Yes (Hospitalization)
  Sender: FDA-Public Use
  Company Number: 7004958

PATIENT
  Age: 38 Year
  Sex: Female
  Weight: 62 kg

DRUGS (2)
  1. REBIF [Suspect]
     Indication: MULTIPLE SCLEROSIS
     Dosage: 44 MCG, 3 IN 1 WK, SUBCUTANEOUS, 44 MCG, 3 IN 1 WK, SUBCUTANEOUS
     Route: 058
     Dates: start: 20050418, end: 20100101
  2. REBIF [Suspect]
     Indication: MULTIPLE SCLEROSIS
     Dosage: 44 MCG, 3 IN 1 WK, SUBCUTANEOUS, 44 MCG, 3 IN 1 WK, SUBCUTANEOUS
     Route: 058
     Dates: start: 20100301, end: 20100101

REACTIONS (7)
  - GASTRITIS [None]
  - GASTROINTESTINAL INFLAMMATION [None]
  - HEPATIC ENZYME INCREASED [None]
  - HERNIA REPAIR [None]
  - MEDICAL DEVICE COMPLICATION [None]
  - NAUSEA [None]
  - VOMITING [None]
